FAERS Safety Report 4270517-1 (Version None)
Quarter: 2004Q1

REPORT INFORMATION
  Report Type: 
  Country: None (occurrence: None)
  Receive Date: 20040113
  Receipt Date: 20040113
  Transmission Date: 20041129
  Serious: Yes (Other)
  Sender: FDA-Public Use
  Company Number: None

PATIENT
  Age: 59 Year
  Sex: Male
  Weight: 110.2241 kg

DRUGS (3)
  1. DEXAMETHASONE [Suspect]
     Indication: VOMITING
     Dosage: 20 MG DAY 1 DAY IV
     Route: 042
     Dates: start: 20031106, end: 20040102
  2. CARBOPLATIN [Concomitant]
  3. IRINOTECAN [Concomitant]

REACTIONS (2)
  - BLOOD GLUCOSE INCREASED [None]
  - DRUG TOXICITY [None]
